FAERS Safety Report 25088480 (Version 2)
Quarter: 2025Q2

REPORT INFORMATION
  Report Type: Spontaneous
  Country: US (occurrence: US)
  Receive Date: 20250318
  Receipt Date: 20250407
  Transmission Date: 20250716
  Serious: Yes (Other)
  Sender: BAYER
  Company Number: US-BAYER-2025A031992

PATIENT
  Age: 74 Year
  Sex: Female

DRUGS (3)
  1. KERENDIA [Suspect]
     Active Substance: FINERENONE
  2. KERENDIA [Suspect]
     Active Substance: FINERENONE
  3. METFORMIN [Concomitant]
     Active Substance: METFORMIN HYDROCHLORIDE

REACTIONS (14)
  - Renal function test abnormal [None]
  - Lupus nephritis [None]
  - Adverse event [None]
  - Malaise [None]
  - Chills [None]
  - Tremor [None]
  - Nasopharyngitis [None]
  - Hypoaesthesia [Not Recovered/Not Resolved]
  - Headache [None]
  - Fatigue [None]
  - Abdominal pain [None]
  - Feeling abnormal [None]
  - Product dose omission issue [None]
  - Product prescribing issue [None]

NARRATIVE: CASE EVENT DATE: 20250301
